FAERS Safety Report 11458054 (Version 1)
Quarter: 2015Q3

REPORT INFORMATION
  Report Type: Spontaneous
  Country: US (occurrence: None)
  Receive Date: 20150903
  Receipt Date: 20150903
  Transmission Date: 20151125
  Serious: No
  Sender: FDA-Public Use
  Company Number: None

PATIENT
  Age: 14 Year
  Sex: Female
  Weight: 74.84 kg

DRUGS (1)
  1. SKLICE [Suspect]
     Active Substance: IVERMECTIN
     Indication: LICE INFESTATION
     Dosage: 1 TIME?ONE TIME USE?APPLIED TO A SURFACE USUALLY THE SKIN
     Route: 061
     Dates: start: 20150802

REACTIONS (1)
  - Alopecia [None]

NARRATIVE: CASE EVENT DATE: 20150802
